FAERS Safety Report 8625418-2 (Version None)
Quarter: 2012Q3

REPORT INFORMATION
  Report Type: 
  Country: None (occurrence: None)
  Receive Date: 20120827
  Receipt Date: 20120820
  Transmission Date: 20120928
  Serious: Yes (Other)
  Sender: FDA-Public Use
  Company Number: CHPA2012US018487

PATIENT
  Sex: Female

DRUGS (2)
  1. BENEFIBER W/ WHEAT DEXTRIN [Suspect]
     Indication: DIVERTICULITIS
     Dosage: 3 DF, QD
     Route: 048
     Dates: start: 20070101
  2. BENEFIBER W/ WHEAT DEXTRIN [Suspect]
     Dosage: UNK, UNK
     Route: 048
     Dates: start: 20070101

REACTIONS (4)
  - OFF LABEL USE [None]
  - THERAPEUTIC RESPONSE UNEXPECTED [None]
  - DIVERTICULITIS [None]
  - PAIN [None]
